FAERS Safety Report 15405745 (Version 5)
Quarter: 2019Q1

REPORT INFORMATION
  Report Type: Report from Study
  Country: AT (occurrence: AT)
  Receive Date: 20180920
  Receipt Date: 20190102
  Transmission Date: 20190417
  Serious: Yes (Hospitalization)
  Sender: FDA-Public Use
  Company Number: AT-ROCHE-2183391

PATIENT
  Age: 22 Year
  Sex: Female
  Weight: 47 kg

DRUGS (15)
  1. FERRO PLUS [Concomitant]
     Route: 048
     Dates: start: 20180417, end: 20180617
  2. CANESTEN [Concomitant]
     Active Substance: CLOTRIMAZOLE
     Indication: FUNGAL SKIN INFECTION
     Route: 061
     Dates: start: 20171127, end: 20171205
  3. PURE ENCAPSULATIONS KALIUM-MAGNESIUM [Concomitant]
     Indication: HYPOKALAEMIA
     Route: 048
     Dates: start: 20180515
  4. PARACETAMOL [Concomitant]
     Active Substance: ACETAMINOPHEN
     Dosage: ONCE BEFORE INFUSION (27/MAR/2018)
     Route: 042
     Dates: start: 20171006
  5. PERFALGAN [Concomitant]
     Active Substance: ACETAMINOPHEN
     Dosage: ONCE BEFORE INFUSION
     Route: 042
     Dates: start: 20171020
  6. OCRELIZUMAB. [Suspect]
     Active Substance: OCRELIZUMAB
     Indication: RELAPSING-REMITTING MULTIPLE SCLEROSIS
     Dosage: TWO 300 MG INFUSIONS ON DAYS 1 AND 15, FOLLOWED BY ONE 600 MG INFUSION DOSE EVERY 24 WEEKS FOR A MAX
     Route: 042
     Dates: start: 20171006
  7. METHYLPREDNISOLONE. [Suspect]
     Active Substance: METHYLPREDNISOLONE
     Indication: RELAPSING-REMITTING MULTIPLE SCLEROSIS
     Dosage: ALSO RECEVED ON: 20/OCT/2017?LAST DOSE ADMINISTERED: 27/MAR/2018, 100MG
     Route: 042
     Dates: start: 20171006
  8. ALLVITAL VITAMIN C COMPLEX [Concomitant]
     Route: 048
  9. DIBONDRIN [Concomitant]
     Active Substance: DIPHENHYDRAMINE HYDROCHLORIDE
     Dosage: ONCE BEFORE INFUSION (20/OCT/2017, 27/MAR/2018)
     Route: 042
     Dates: start: 20171006
  10. BALDRIAN [Concomitant]
     Active Substance: VALERIAN
     Indication: SLEEP DISORDER
     Route: 048
     Dates: start: 20180417
  11. TRAVOCORT [Concomitant]
     Active Substance: DIFLUCORTOLONE VALERATE\ISOCONAZOLE NITRATE
     Indication: FUNGAL SKIN INFECTION
     Route: 061
     Dates: start: 20171116, end: 20171126
  12. TRAVOCORT [Concomitant]
     Active Substance: DIFLUCORTOLONE VALERATE\ISOCONAZOLE NITRATE
     Route: 061
     Dates: start: 20180416
  13. DEKRISTOL [Concomitant]
     Active Substance: CHOLECALCIFEROL
     Route: 048
  14. CANESTEN [Concomitant]
     Active Substance: CLOTRIMAZOLE
     Route: 061
     Dates: start: 20180416, end: 20180416
  15. MIDANE [Concomitant]
     Route: 048

REACTIONS (1)
  - Gastroenteritis [Recovered/Resolved]

NARRATIVE: CASE EVENT DATE: 20180419
